FAERS Safety Report 4379311-4 (Version None)
Quarter: 2004Q2

REPORT INFORMATION
  Report Type: 
  Country: None (occurrence: None)
  Receive Date: 20040617
  Receipt Date: 20040607
  Transmission Date: 20050107
  Serious: Yes (Hospitalization)
  Sender: FDA-Public Use
  Company Number: 200412265FR

PATIENT
  Age: 79 Year
  Sex: Female

DRUGS (6)
  1. LASILIX FAIBLE [Suspect]
     Route: 048
     Dates: end: 20030703
  2. GENTAMICIN ^PANPHARMA^ [Suspect]
     Indication: SEPSIS
     Route: 042
     Dates: end: 20030703
  3. VIOXX [Suspect]
     Route: 048
     Dates: end: 20030703
  4. ZESTRIL [Suspect]
     Route: 048
     Dates: end: 20030703
  5. CORDARONE [Concomitant]
     Route: 048
     Dates: end: 20030711
  6. OGAST [Concomitant]
     Route: 048
     Dates: end: 20030711

REACTIONS (8)
  - BLOOD PH DECREASED [None]
  - DEHYDRATION [None]
  - ERYSIPELAS [None]
  - HYPERKALAEMIA [None]
  - HYPERPHOSPHATAEMIA [None]
  - HYPONATRAEMIA [None]
  - RENAL FAILURE ACUTE [None]
  - STAPHYLOCOCCAL SEPSIS [None]
